FAERS Safety Report 10523543 (Version 1)
Quarter: 2014Q4

REPORT INFORMATION
  Report Type: Spontaneous
  Country: US (occurrence: US)
  Receive Date: 20141017
  Receipt Date: 20141017
  Transmission Date: 20150528
  Serious: Yes (Hospitalization)
  Sender: FDA-Public Use
  Company Number: US-BEH-2014045558

PATIENT
  Age: 9 Year
  Sex: Female
  Weight: 25 kg

DRUGS (27)
  1. DIPHENHYDRAMINE [Concomitant]
     Active Substance: DIPHENHYDRAMINE
  2. URSODIOL. [Concomitant]
     Active Substance: URSODIOL
  3. SODIUM BICARBONATE. [Concomitant]
     Active Substance: SODIUM BICARBONATE
  4. HEPARIN [Concomitant]
     Active Substance: HEPARIN SODIUM
  5. NEUPOGEN [Concomitant]
     Active Substance: FILGRASTIM
  6. BOOST KID ESSENTIALS [Concomitant]
  7. TRIAMCINOLONE CREAM [Concomitant]
     Route: 061
  8. FLONASE [Concomitant]
     Active Substance: FLUTICASONE PROPIONATE
  9. XOPENEX [Concomitant]
     Active Substance: LEVALBUTEROL HYDROCHLORIDE
  10. EPIPEN [Concomitant]
     Active Substance: EPINEPHRINE
  11. AZITHROMYCIN [Concomitant]
     Active Substance: AZITHROMYCIN ANHYDROUS
  12. CYPROHEPTADINE. [Concomitant]
     Active Substance: CYPROHEPTADINE
  13. SALINE NASAL SPRAY [Concomitant]
     Active Substance: SODIUM CHLORIDE
     Route: 045
  14. TPN ELECTROLYTES [Concomitant]
     Active Substance: CALCIUM CHLORIDE\MAGNESIUM CHLORIDE\POTASSIUM CHLORIDE\SODIUM ACETATE ANHYDROUS\SODIUM CHLORIDE
  15. PRIVIGEN [Suspect]
     Active Substance: HUMAN IMMUNOGLOBULIN G
     Indication: IMMUNODEFICIENCY
     Route: 042
     Dates: start: 20140922
  16. SODIUM CHLORIDE. [Concomitant]
     Active Substance: SODIUM CHLORIDE
  17. LMX [Concomitant]
     Active Substance: LIDOCAINE
  18. DAPSONE. [Concomitant]
     Active Substance: DAPSONE
  19. NORMAL SALINE [Concomitant]
     Active Substance: SODIUM CHLORIDE
  20. FERINSOL [Concomitant]
  21. BUDESONIDE. [Concomitant]
     Active Substance: BUDESONIDE
  22. ZOFRAN [Concomitant]
     Active Substance: ONDANSETRON HYDROCHLORIDE
  23. PRIVIGEN [Suspect]
     Active Substance: HUMAN IMMUNOGLOBULIN G
     Indication: SPINOCEREBELLAR DISORDER
     Route: 042
     Dates: start: 20140922
  24. SPIRONOLACTONE. [Concomitant]
     Active Substance: SPIRONOLACTONE
  25. ACETAMINOPHEN. [Concomitant]
     Active Substance: ACETAMINOPHEN
  26. IRON [Concomitant]
     Active Substance: IRON
  27. CLARITIN [Concomitant]
     Active Substance: LORATADINE

REACTIONS (1)
  - Investigation [Recovered/Resolved]

NARRATIVE: CASE EVENT DATE: 20140927
